FAERS Safety Report 7064615-7 (Version None)
Quarter: 2010Q4

REPORT INFORMATION
  Report Type: 
  Country: None (occurrence: None)
  Receive Date: 20101022
  Receipt Date: 20101022
  Transmission Date: 20110411
  Serious: Yes (Life-Threatening, Hospitalization)
  Sender: FDA-Public Use
  Company Number: None

PATIENT
  Age: 77 Year
  Sex: Female
  Weight: 99.7913 kg

DRUGS (1)
  1. DARPOZ (URELLE) [Suspect]
     Indication: URINARY TRACT DISORDER
     Dosage: SEE ATTACHED
     Dates: start: 20100605

REACTIONS (12)
  - CEREBROVASCULAR ACCIDENT [None]
  - COLD SWEAT [None]
  - DIARRHOEA [None]
  - DIZZINESS [None]
  - FEELING ABNORMAL [None]
  - MALAISE [None]
  - MEDICATION RESIDUE [None]
  - MOTOR DYSFUNCTION [None]
  - PHOTOSENSITIVITY REACTION [None]
  - PRODUCT CONTAMINATION [None]
  - VISION BLURRED [None]
  - VOMITING [None]
